FAERS Safety Report 7520439-5 (Version None)
Quarter: 2011Q2

REPORT INFORMATION
  Report Type: 
  Country: None (occurrence: None)
  Receive Date: 20110602
  Receipt Date: 20110516
  Transmission Date: 20111010
  Serious: Yes (Hospitalization)
  Sender: FDA-Public Use
  Company Number: FR-MERCK-1105FRA00138

PATIENT
  Age: 86 Year
  Sex: Female

DRUGS (1)
  1. FOSAMAX PLUS D [Suspect]
     Indication: OSTEOPOROSIS
     Route: 048
     Dates: start: 20090601

REACTIONS (5)
  - DIVERTICULUM [None]
  - MELAENA [None]
  - COLONIC POLYP [None]
  - ANAEMIA [None]
  - HIATUS HERNIA [None]
